FAERS Safety Report 7395713-6 (Version None)
Quarter: 2011Q2

REPORT INFORMATION
  Report Type: 
  Country: None (occurrence: None)
  Receive Date: 20110405
  Receipt Date: 20101228
  Transmission Date: 20111010
  Serious: No
  Sender: FDA-Public Use
  Company Number: US-BAYER-2011-025931

PATIENT
  Sex: Male
  Weight: 150 kg

DRUGS (8)
  1. METOPROLOL [Concomitant]
  2. PLAVIX [Concomitant]
  3. ASPIRIN [Suspect]
     Route: 048
  4. NEXIUM [Concomitant]
  5. ONE-A-DAY MEN'S 50 + ADVANTAGE [Suspect]
     Indication: VITAMIN SUPPLEMENTATION
     Dosage: UNK
     Route: 048
     Dates: start: 20100101
  6. IRON [Concomitant]
     Indication: MINERAL SUPPLEMENTATION
  7. VITAMIN B-12 [Concomitant]
  8. CRESTOR [Concomitant]

REACTIONS (1)
  - DIZZINESS [None]
